FAERS Safety Report 20699593 (Version 1)
Quarter: 2022Q2

REPORT INFORMATION
  Report Type: Spontaneous
  Country: US (occurrence: None)
  Receive Date: 20220411
  Receipt Date: 20220411
  Transmission Date: 20220721
  Serious: Yes (Death)
  Sender: FDA-Public Use
  Company Number: None

PATIENT
  Sex: Male

DRUGS (1)
  1. FLUOROURACIL [Suspect]
     Active Substance: FLUOROURACIL
     Dosage: OTHER QUANTITY : 860,5130MG;?OTHER FREQUENCY : N/A;?
     Route: 042
     Dates: start: 20211210, end: 20220401

REACTIONS (1)
  - Death [None]
